FAERS Safety Report 15430918 (Version 1)
Quarter: 2018Q3

REPORT INFORMATION
  Report Type: Spontaneous
  Country: US (occurrence: US)
  Receive Date: 20180926
  Receipt Date: 20180926
  Transmission Date: 20181010
  Serious: No
  Sender: FDA-Public Use
  Company Number: US-INDIVIOR LIMITED-INDV-110965-2018

PATIENT
  Age: 36 Year
  Sex: Female

DRUGS (2)
  1. SUBOXONE [Suspect]
     Active Substance: BUPRENORPHINE HYDROCHLORIDE\NALOXONE HYDROCHLORIDE
     Indication: PRODUCT USED FOR UNKNOWN INDICATION
     Dosage: 8 MG, DAILY
     Route: 002
     Dates: start: 201804
  2. EFFEXOR [Concomitant]
     Active Substance: VENLAFAXINE HYDROCHLORIDE
     Indication: NARCOLEPSY
     Dosage: UNKNOWN
     Route: 065

REACTIONS (5)
  - Psychomotor hyperactivity [Unknown]
  - Muscle spasms [Unknown]
  - Muscle twitching [Unknown]
  - Pain in extremity [Unknown]
  - Fear [Unknown]

NARRATIVE: CASE EVENT DATE: 201804
